FAERS Safety Report 10229954 (Version 1)
Quarter: 2014Q2

REPORT INFORMATION
  Report Type: Spontaneous
  Country: US (occurrence: None)
  Receive Date: 20140610
  Receipt Date: 20140610
  Transmission Date: 20141212
  Serious: No
  Sender: FDA-Public Use
  Company Number: None

PATIENT
  Age: 44 Year
  Sex: Female

DRUGS (1)
  1. HUMIRA [Suspect]
     Indication: CROHN^S DISEASE
     Dosage: 40 MG SQ EVERY OTHER WEEK SQ
     Route: 058
     Dates: start: 20131209, end: 20140605

REACTIONS (3)
  - Swelling [None]
  - Injection site irritation [None]
  - Injection site swelling [None]
